FAERS Safety Report 10491497 (Version 1)
Quarter: 2014Q4

REPORT INFORMATION
  Report Type: Spontaneous
  Country: US (occurrence: US)
  Receive Date: 20141002
  Receipt Date: 20141002
  Transmission Date: 20150528
  Serious: No
  Sender: FDA-Public Use
  Company Number: US-GLAXOSMITHKLINE-A1054141A

PATIENT
  Age: 78 Year
  Sex: Male

DRUGS (5)
  1. CARBIDOPA AND LEVODOPA [Concomitant]
     Active Substance: CARBIDOPA\LEVODOPA
  2. WATER PILL [Concomitant]
     Active Substance: UNSPECIFIED INGREDIENT
  3. WARFARIN SODIUM. [Concomitant]
     Active Substance: WARFARIN SODIUM
  4. ADVAIR HFA [Suspect]
     Active Substance: FLUTICASONE PROPIONATE\SALMETEROL XINAFOATE
     Indication: ASTHMA
     Dosage: 1PUFF TWICE PER DAY
     Route: 055
     Dates: start: 2009
  5. POTASSIUM [Concomitant]
     Active Substance: POTASSIUM

REACTIONS (3)
  - Tremor [Not Recovered/Not Resolved]
  - Product quality issue [Unknown]
  - Saliva discolouration [Not Recovered/Not Resolved]

NARRATIVE: CASE EVENT DATE: 20131218
